FAERS Safety Report 10093977 (Version 1)
Quarter: 2014Q2

REPORT INFORMATION
  Report Type: Report from Study
  Country: UY (occurrence: UY)
  Receive Date: 20140421
  Receipt Date: 20140421
  Transmission Date: 20141212
  Serious: Yes (Death)
  Sender: FDA-Public Use
  Company Number: UY-ROCHE-1387809

PATIENT
  Age: 66 Year
  Sex: Female

DRUGS (2)
  1. XELODA [Suspect]
     Indication: GASTROINTESTINAL CARCINOMA
     Dosage: 1500 MG AM + 1000 MG PM
     Route: 048
     Dates: start: 20140304, end: 2014
  2. OXALIPLATIN [Concomitant]
     Indication: GASTROINTESTINAL CARCINOMA
     Route: 042

REACTIONS (1)
  - Death [Fatal]
